FAERS Safety Report 22770619 (Version 5)
Quarter: 2025Q1

REPORT INFORMATION
  Report Type: Spontaneous
  Country: US (occurrence: US)
  Receive Date: 20230801
  Receipt Date: 20250203
  Transmission Date: 20250409
  Serious: No
  Sender: LUPIN
  Company Number: US-LUPIN PHARMACEUTICALS INC.-2023-06278

PATIENT

DRUGS (3)
  1. ALBUTEROL SULFATE [Suspect]
     Active Substance: ALBUTEROL SULFATE
     Indication: Chronic obstructive pulmonary disease
     Dates: start: 20230715
  2. ALBUTEROL SULFATE [Suspect]
     Active Substance: ALBUTEROL SULFATE
     Dosage: UNK (4 PUFFS DAILY)
     Dates: start: 20240405
  3. TRELEGY ELLIPTA [Concomitant]
     Active Substance: FLUTICASONE FUROATE\UMECLIDINIUM BROMIDE\VILANTEROL TRIFENATATE
     Indication: Dyspnoea
     Route: 065

REACTIONS (4)
  - Dyspnoea [Recovered/Resolved]
  - Drug dose omission by device [Unknown]
  - Device delivery system issue [Unknown]
  - Product storage error [Unknown]

NARRATIVE: CASE EVENT DATE: 20230721
